FAERS Safety Report 10032659 (Version 1)
Quarter: 2014Q1

REPORT INFORMATION
  Report Type: Spontaneous
  Country: US (occurrence: US)
  Receive Date: 20140324
  Receipt Date: 20140324
  Transmission Date: 20141002
  Serious: Yes (Death)
  Sender: FDA-Public Use
  Company Number: US-GLAXOSMITHKLINE-A1066356A

PATIENT
  Sex: Female

DRUGS (2)
  1. FLOLAN [Suspect]
     Indication: COR PULMONALE CHRONIC
     Dosage: 20.5NGKM CONTINUOUS
     Route: 042
     Dates: start: 20100702
  2. REVATIO [Concomitant]

REACTIONS (1)
  - Death [Fatal]
